FAERS Safety Report 6529437-1 (Version None)
Quarter: 2010Q1

REPORT INFORMATION
  Report Type: 
  Country: None (occurrence: None)
  Receive Date: 20100107
  Receipt Date: 20091230
  Transmission Date: 20100710
  Serious: Yes (Hospitalization)
  Sender: FDA-Public Use
  Company Number: US-ASTRAZENECA-2009SE34035

PATIENT
  Sex: Male
  Weight: 108.9 kg

DRUGS (5)
  1. CRESTOR [Suspect]
     Route: 048
  2. CAPTOPRIL [Concomitant]
     Indication: HYPERTENSION
  3. METFORMIN HYDROCHLORIDE [Concomitant]
     Indication: DIABETES MELLITUS
  4. RANITIDINE [Concomitant]
     Indication: GASTROOESOPHAGEAL REFLUX DISEASE
  5. GEMFIBROZIL [Concomitant]
     Indication: BLOOD CHOLESTEROL
     Dosage: TWO TIMES A DAY

REACTIONS (2)
  - MUSCLE INJURY [None]
  - ROAD TRAFFIC ACCIDENT [None]
